FAERS Safety Report 4332844-9 (Version None)
Quarter: 2004Q1

REPORT INFORMATION
  Report Type: 
  Country: None (occurrence: None)
  Receive Date: 20040330
  Receipt Date: 20031112
  Transmission Date: 20041129
  Serious: Yes (Hospitalization)
  Sender: FDA-Public Use
  Company Number: A02200303050

PATIENT
  Age: 64 Year
  Sex: Male

DRUGS (6)
  1. PLAVIX [Suspect]
     Indication: ARTERIOPATHIC DISEASE
     Dosage: 75 MG OD,
     Route: 048
     Dates: start: 20030110, end: 20030828
  2. ASPIRIN [Suspect]
     Indication: ARTERIOPATHIC DISEASE
     Dosage: 160 MG OD,
     Route: 048
     Dates: end: 20030801
  3. COZAAR [Suspect]
     Indication: HYPERTENSION
     Dosage: 50 MG OD,
     Route: 048
     Dates: start: 19970101, end: 20030801
  4. INEXIUM - (EZOMEPRAZOLE) [Suspect]
     Dosage: 40 MG OD,
     Route: 048
     Dates: end: 20030801
  5. SPIRONOLACTONE [Suspect]
     Indication: HYPERTENSION
     Dosage: 50 MG OD,
     Route: 048
     Dates: start: 20030124, end: 20030828
  6. PREDNISONE TAB [Suspect]
     Indication: MYALGIA
     Dosage: 20 MG OD
     Route: 048
     Dates: start: 20021210

REACTIONS (2)
  - CUTANEOUS LUPUS ERYTHEMATOSUS [None]
  - TOXIC SKIN ERUPTION [None]
